FAERS Safety Report 8123228-6 (Version None)
Quarter: 2012Q1

REPORT INFORMATION
  Report Type: 
  Country: None (occurrence: None)
  Receive Date: 20120208
  Receipt Date: 20120130
  Transmission Date: 20120608
  Serious: Yes (Other)
  Sender: FDA-Public Use
  Company Number: US-CELGENEUS-163-21880-11103161

PATIENT
  Sex: Male

DRUGS (2)
  1. REVLIMID [Suspect]
     Indication: MULTIPLE MYELOMA
     Dosage: 10 MILLIGRAM
     Route: 048
     Dates: start: 20110912, end: 20111017
  2. ASACOL [Concomitant]
     Indication: COLITIS
     Dosage: 500 MILLIGRAM
     Route: 065
     Dates: start: 20100101, end: 20111017

REACTIONS (4)
  - DISSEMINATED INTRAVASCULAR COAGULATION [None]
  - THROMBOCYTOPENIA [None]
  - PNEUMONIA [None]
  - ENTEROCOCCAL INFECTION [None]
